FAERS Safety Report 8571242-9 (Version None)
Quarter: 2012Q3

REPORT INFORMATION
  Report Type: 
  Country: None (occurrence: None)
  Receive Date: 20120730
  Receipt Date: 20120730
  Transmission Date: 20120928
  Serious: Yes (Hospitalization)
  Sender: FDA-Public Use
  Company Number: None

PATIENT
  Age: 47 Year
  Sex: Male
  Weight: 86.8 kg

DRUGS (2)
  1. METOPROLOL TARTRATE [Suspect]
     Indication: HYPERTENSION
     Dosage: 25 MG BID PO
     Route: 048
     Dates: start: 20120406, end: 20120722
  2. AMLODIPINE [Suspect]
     Indication: HYPERTENSION
     Dosage: 10 EVERY DAY PO
     Route: 048
     Dates: start: 20100421, end: 20120722

REACTIONS (2)
  - HYPOTENSION [None]
  - DIZZINESS [None]
